FAERS Safety Report 25301212 (Version 1)
Quarter: 2025Q2

REPORT INFORMATION
  Report Type: Spontaneous
  Country: PT (occurrence: PT)
  Receive Date: 20250512
  Receipt Date: 20250512
  Transmission Date: 20250716
  Serious: Yes (Hospitalization, Other)
  Sender: ELI LILLY AND COMPANY
  Company Number: PT-ELI_LILLY_AND_COMPANY-PT202505001907

PATIENT
  Age: 21 Year
  Sex: Female

DRUGS (2)
  1. INSULIN LISPRO [Suspect]
     Active Substance: INSULIN LISPRO
     Indication: Type 1 diabetes mellitus
     Route: 058
  2. INSULIN GLARGINE [Suspect]
     Active Substance: INSULIN GLARGINE
     Indication: Type 1 diabetes mellitus
     Dosage: 40 U, EACH EVENING
     Route: 058

REACTIONS (7)
  - Hyperglycaemia [Recovered/Resolved]
  - Diabetic hepatopathy [Unknown]
  - Mauriac syndrome [Not Recovered/Not Resolved]
  - Chronic hepatitis [Unknown]
  - Diabetic ketoacidosis [Recovered/Resolved]
  - Lactic acidosis [Unknown]
  - Hypoglycaemia [Recovered/Resolved]
